FAERS Safety Report 13535172 (Version 3)
Quarter: 2018Q3

REPORT INFORMATION
  Report Type: Spontaneous
  Country: US (occurrence: US)
  Receive Date: 20170511
  Receipt Date: 20180716
  Transmission Date: 20181010
  Serious: No
  Sender: FDA-Public Use
  Company Number: US-VIFOR (INTERNATIONAL) INC.-VIT-2017-00733

PATIENT
  Age: 66 Year
  Sex: Female

DRUGS (22)
  1. VELTASSA [Suspect]
     Active Substance: PATIROMER
     Indication: ESSENTIAL HYPERTENSION
     Dosage: 1 PACKET
     Route: 048
     Dates: start: 20160810
  2. NOVOLOG [Concomitant]
     Active Substance: INSULIN ASPART
  3. COLCRYS [Concomitant]
     Active Substance: COLCHICINE
  4. CARVEDILOL. [Concomitant]
     Active Substance: CARVEDILOL
  5. TOCOPHEROL [Concomitant]
     Active Substance: TOCOPHEROL
  6. CALTRATE WITH VITAMIN D [Concomitant]
     Active Substance: CALCIUM CARBONATE\CHOLECALCIFEROL
  7. PROAIR HFA [Concomitant]
     Active Substance: ALBUTEROL SULFATE
  8. VELTASSA [Suspect]
     Active Substance: PATIROMER
     Indication: HYPERKALAEMIA
     Route: 048
     Dates: start: 20160812
  9. ZETIA [Concomitant]
     Active Substance: EZETIMIBE
  10. CENTRUM [Concomitant]
     Active Substance: VITAMINS
  11. ERGOCALCIFEROL. [Concomitant]
     Active Substance: ERGOCALCIFEROL
  12. LASIX [Concomitant]
     Active Substance: FUROSEMIDE
  13. COZAAR [Concomitant]
     Active Substance: LOSARTAN POTASSIUM
  14. COREG [Concomitant]
     Active Substance: CARVEDILOL
  15. SINGULAIR [Concomitant]
     Active Substance: MONTELUKAST SODIUM
  16. TRESIBA [Concomitant]
     Active Substance: INSULIN DEGLUDEC
  17. HYDROCHLOROTHIAZIDE. [Concomitant]
     Active Substance: HYDROCHLOROTHIAZIDE
  18. ACETYLSALICYLIC ACID [Concomitant]
     Active Substance: ASPIRIN
  19. VALSARTAN. [Concomitant]
     Active Substance: VALSARTAN
  20. TRAMADOL. [Concomitant]
     Active Substance: TRAMADOL
  21. SALBUTAMOL [Concomitant]
     Active Substance: ALBUTEROL
  22. WARFARIN [Concomitant]
     Active Substance: WARFARIN

REACTIONS (3)
  - Peripheral swelling [Not Recovered/Not Resolved]
  - Blister [Not Recovered/Not Resolved]
  - Constipation [Not Recovered/Not Resolved]

NARRATIVE: CASE EVENT DATE: 2016
